FAERS Safety Report 23348686 (Version 1)
Quarter: 2023Q4

REPORT INFORMATION
  Report Type: Spontaneous
  Country: CN (occurrence: CN)
  Receive Date: 20231229
  Receipt Date: 20231229
  Transmission Date: 20240110
  Serious: Yes (Other)
  Sender: FDA-Public Use
  Company Number: CN-ABBVIE-5561993

PATIENT
  Age: 69 Year
  Sex: Male
  Weight: 64 kg

DRUGS (2)
  1. VENETOCLAX [Suspect]
     Active Substance: VENETOCLAX
     Indication: Neoplasm
     Route: 048
     Dates: start: 202312, end: 20231219
  2. VENETOCLAX [Suspect]
     Active Substance: VENETOCLAX
     Indication: Neoplasm
     Dosage: LAST ADMIN DATE -DEC 2023
     Route: 048
     Dates: start: 20231205

REACTIONS (1)
  - Myelosuppression [Not Recovered/Not Resolved]

NARRATIVE: CASE EVENT DATE: 20231216
